FAERS Safety Report 19446248 (Version 1)
Quarter: 2021Q2

REPORT INFORMATION
  Report Type: Spontaneous
  Country: US (occurrence: US)
  Receive Date: 20210622
  Receipt Date: 20210622
  Transmission Date: 20210717
  Serious: Yes (Other)
  Sender: FDA-Public Use
  Company Number: US-LUPIN PHARMACEUTICALS INC.-2021-09564

PATIENT
  Age: 90 Year
  Sex: Female
  Weight: 53.06 kg

DRUGS (6)
  1. HYDROCODONE BITARTRATE AND HOMATROPINE METHYLBROMIDE [Suspect]
     Active Substance: HOMATROPINE METHYLBROMIDE\HYDROCODONE BITARTRATE
     Dosage: UNK
     Route: 065
     Dates: start: 202106
  2. HYDROCODONE BITARTRATE AND HOMATROPINE METHYLBROMIDE [Suspect]
     Active Substance: HOMATROPINE METHYLBROMIDE\HYDROCODONE BITARTRATE
     Indication: PAIN
     Dosage: 01 DOSAGE FORM, TID
     Route: 065
     Dates: end: 2021
  3. TYLENOL [Concomitant]
     Active Substance: ACETAMINOPHEN
     Indication: HEADACHE
     Dosage: UNK
     Route: 065
  4. TYLENOL [Concomitant]
     Active Substance: ACETAMINOPHEN
     Indication: PAIN
  5. HYDROCODONE BITARTRATE AND HOMATROPINE METHYLBROMIDE [Suspect]
     Active Substance: HOMATROPINE METHYLBROMIDE\HYDROCODONE BITARTRATE
     Dosage: 03 DOSAGE FORM, IN 48?HOURS (BUT SOME TIME SHE HAD MORE PAIN, SO SHE HAD TO TAKE EXTRA PILL)
     Route: 065
     Dates: start: 2021, end: 202105
  6. ATENOLOL. [Concomitant]
     Active Substance: ATENOLOL
     Indication: HYPERTENSION
     Dosage: 50 MILLIGRAM, BID
     Route: 065

REACTIONS (4)
  - Diarrhoea [Recovering/Resolving]
  - Product dose omission issue [Unknown]
  - Withdrawal syndrome [Unknown]
  - Abdominal pain upper [Recovering/Resolving]

NARRATIVE: CASE EVENT DATE: 202105
